FAERS Safety Report 15904327 (Version 5)
Quarter: 2021Q3

REPORT INFORMATION
  Report Type: Report from Study
  Country: DE (occurrence: DE)
  Receive Date: 20190204
  Receipt Date: 20210824
  Transmission Date: 20211014
  Serious: Yes (Other)
  Sender: FDA-Public Use
  Company Number: DE-ROCHE-2255094

PATIENT
  Age: 60 Year
  Sex: Male
  Weight: 86 kg

DRUGS (63)
  1. ATEZOLIZUMAB. [Suspect]
     Active Substance: ATEZOLIZUMAB
     Indication: MALIGNANT MELANOMA
     Dosage: ON 27/OCT/2017, HE RECEIVED THE MOST RECENT DOSE OF BLINDED ATEZOLIZUMAB PRIOR TO EVENT ONSET.?DOSE:
     Route: 041
     Dates: start: 20170526
  2. IDEOS [Concomitant]
     Active Substance: CALCIUM CARBONATE\CHOLECALCIFEROL
     Route: 048
     Dates: start: 20171110
  3. PANTOPRAZOL [Concomitant]
     Active Substance: PANTOPRAZOLE SODIUM
     Route: 048
     Dates: start: 20200121
  4. IBUPROFEN. [Concomitant]
     Active Substance: IBUPROFEN
     Indication: ARTHRALGIA
     Dates: start: 20171103
  5. ELIDEL [Concomitant]
     Active Substance: PIMECROLIMUS
     Dates: start: 20200523
  6. ACC [Concomitant]
     Active Substance: ACETYLCYSTEINE
     Dates: start: 20190212, end: 20190301
  7. EUPHRASIA [Concomitant]
     Indication: BLEPHARITIS
     Dates: start: 20200123
  8. NOVALGIN (METAMIZOLE SODIUM) [Concomitant]
     Active Substance: METAMIZOLE SODIUM
     Route: 048
     Dates: start: 20200523, end: 20200604
  9. SULTAMICILLIN [Concomitant]
     Active Substance: SULTAMICILLIN
     Route: 048
     Dates: start: 20201111, end: 20201116
  10. VEMURAFENIB. [Suspect]
     Active Substance: VEMURAFENIB
     Indication: MALIGNANT MELANOMA
     Dosage: ON 10/NOV/2017, HE RECEIVED THE MOST RECENT DOSE OF VEMURAFENIB (4 TABLETS) PRIOR TO EVENT ONSET.?ON
     Route: 048
     Dates: start: 20170428
  11. CANDESARTAN. [Concomitant]
     Active Substance: CANDESARTAN
     Indication: HYPERTENSION
     Route: 048
     Dates: start: 20150801
  12. ARCOXIA [Concomitant]
     Active Substance: ETORICOXIB
     Indication: ARTHRALGIA
     Route: 048
     Dates: start: 20170630, end: 20190704
  13. PREDNISOLON [Concomitant]
     Active Substance: PREDNISOLONE
     Route: 048
     Dates: start: 20180115, end: 20180116
  14. PANTOPRAZOL [Concomitant]
     Active Substance: PANTOPRAZOLE SODIUM
     Route: 048
     Dates: start: 20171110, end: 20200120
  15. CEFUROXIM [Concomitant]
     Active Substance: CEFUROXIME
     Dates: start: 20210607, end: 20210612
  16. PALEXIA [Concomitant]
     Active Substance: TAPENTADOL HYDROCHLORIDE
     Route: 048
     Dates: start: 20200504, end: 20200703
  17. LYRICA [Concomitant]
     Active Substance: PREGABALIN
     Indication: POST HERPETIC NEURALGIA
     Route: 048
     Dates: start: 20200718, end: 20200726
  18. SOLARAZE [Concomitant]
     Active Substance: DICLOFENAC SODIUM
     Dates: start: 20180302, end: 20180302
  19. PREDNISOLON [Concomitant]
     Active Substance: PREDNISOLONE
     Route: 048
     Dates: start: 20171230, end: 20180107
  20. PREDNISOLON [Concomitant]
     Active Substance: PREDNISOLONE
     Route: 048
     Dates: start: 20180108, end: 20180112
  21. PREDNISOLON [Concomitant]
     Active Substance: PREDNISOLONE
     Route: 048
     Dates: start: 20180113, end: 20180114
  22. PREDNISOLON [Concomitant]
     Active Substance: PREDNISOLONE
     Route: 048
     Dates: start: 20180117, end: 20180118
  23. NOVALGIN (METAMIZOLE SODIUM) [Concomitant]
     Active Substance: METAMIZOLE SODIUM
     Route: 048
     Dates: start: 20200605, end: 20200617
  24. PREDNISOLON [Concomitant]
     Active Substance: PREDNISOLONE
     Route: 048
     Dates: start: 20171128, end: 20171208
  25. OTRIVEN SINUSPRAY [Concomitant]
     Active Substance: XYLOMETAZOLINE HYDROCHLORIDE
     Indication: VIRAL INFECTION
     Dates: start: 20180130, end: 20191105
  26. IBUPROFEN. [Concomitant]
     Active Substance: IBUPROFEN
     Indication: VIRAL INFECTION
     Dates: start: 20180130, end: 20180201
  27. SOLARAZE [Concomitant]
     Active Substance: DICLOFENAC SODIUM
     Indication: ACTINIC KERATOSIS
     Dates: start: 20181123
  28. BETAGALEN [Concomitant]
     Indication: SARCOIDOSIS
     Dates: start: 20180509
  29. DICLOFENAC [Concomitant]
     Active Substance: DICLOFENAC
     Dates: start: 20191203
  30. ARCOXIA [Concomitant]
     Active Substance: ETORICOXIB
     Route: 048
     Dates: start: 20190705
  31. PREDNISOLON [Concomitant]
     Active Substance: PREDNISOLONE
     Indication: SARCOIDOSIS
     Route: 048
     Dates: start: 20171110, end: 20171115
  32. PREDNISOLON [Concomitant]
     Active Substance: PREDNISOLONE
     Route: 048
     Dates: start: 20171209, end: 20171229
  33. PREDNISOLON [Concomitant]
     Active Substance: PREDNISOLONE
     Route: 048
     Dates: start: 20180119, end: 20180622
  34. MUCOSOLVAN [Concomitant]
     Active Substance: AMBROXOL HYDROCHLORIDE
     Dates: start: 20200218, end: 20200228
  35. ATOSIL [Concomitant]
     Dosage: 5 OTHER
     Route: 048
     Dates: start: 20180509
  36. DEXAMYTREX [Concomitant]
     Active Substance: DEXAMETHASONE SODIUM PHOSPHATE\GENTAMICIN SULFATE
     Dates: start: 20190710, end: 20190724
  37. METHOCARBAMOL. [Concomitant]
     Active Substance: METHOCARBAMOL
     Route: 048
     Dates: start: 20200430, end: 20200504
  38. NOVALGIN (METAMIZOLE SODIUM) [Concomitant]
     Active Substance: METAMIZOLE SODIUM
     Route: 048
     Dates: start: 20200702, end: 20200726
  39. GENTAMYCIN [Concomitant]
     Active Substance: GENTAMICIN
     Indication: HORDEOLUM
     Dates: start: 20170801
  40. PREDNISOLON [Concomitant]
     Active Substance: PREDNISOLONE
     Route: 048
     Dates: start: 20171123, end: 20171127
  41. PREDNISOLON [Concomitant]
     Active Substance: PREDNISOLONE
     Route: 048
     Dates: start: 20190511, end: 20191113
  42. AMOXICILLIN/CLAVULANIC ACID [Concomitant]
     Active Substance: AMOXICILLIN\CLAVULANIC ACID
     Indication: COUGH
     Dates: start: 20180105, end: 20180112
  43. MUCOSOLVAN [Concomitant]
     Active Substance: AMBROXOL HYDROCHLORIDE
     Indication: VIRAL INFECTION
     Dates: start: 20180130, end: 20180202
  44. ELIDEL [Concomitant]
     Active Substance: PIMECROLIMUS
     Indication: ANGULAR CHEILITIS
     Dates: start: 20181001
  45. OPTIDERM F [Concomitant]
     Dates: start: 20200103
  46. VERSATIS [Concomitant]
     Active Substance: LIDOCAINE
     Dates: start: 20200514, end: 20200522
  47. NOVALGIN (METAMIZOLE SODIUM) [Concomitant]
     Active Substance: METAMIZOLE SODIUM
     Route: 048
     Dates: start: 20200515, end: 20200522
  48. PREDNISOLON [Concomitant]
     Active Substance: PREDNISOLONE
     Indication: COUGH
     Route: 048
     Dates: start: 20171116, end: 20171118
  49. PREDNISOLON [Concomitant]
     Active Substance: PREDNISOLONE
     Route: 048
     Dates: start: 20180119, end: 20180622
  50. PREDNISOLON [Concomitant]
     Active Substance: PREDNISOLONE
     Route: 048
     Dates: start: 20180623, end: 20190510
  51. CHLORHEXIL [Concomitant]
     Indication: VIRAL INFECTION
     Dates: start: 20180130
  52. AMPHO MORONAL [Concomitant]
     Active Substance: AMPHOTERICIN B
     Dates: start: 20181109
  53. MAGNESIUM [Concomitant]
     Active Substance: MAGNESIUM
     Indication: MUSCLE SPASMS
     Dates: start: 20170725
  54. PARACODIN [Concomitant]
     Dates: start: 20190212, end: 20190301
  55. DEXAMYTREX [Concomitant]
     Active Substance: DEXAMETHASONE SODIUM PHOSPHATE\GENTAMICIN SULFATE
     Indication: HORDEOLUM
     Dates: start: 20190710, end: 20190724
  56. HYLO GEL [Concomitant]
     Dates: start: 20200123
  57. COBIMETINIB. [Suspect]
     Active Substance: COBIMETINIB
     Indication: MALIGNANT MELANOMA
     Dosage: ON 10/NOV/2017, HE RECEIVED THE MOST RECENT DOSE OF COBIMETINIB PRIOR TO EVENT ONSET.?ON 30/NOV/2017
     Route: 048
     Dates: start: 20170428
  58. OMEPRAZOL [Concomitant]
     Active Substance: OMEPRAZOLE
     Route: 048
     Dates: start: 20170616
  59. PREDNISOLON [Concomitant]
     Active Substance: PREDNISOLONE
     Route: 048
     Dates: start: 20171119, end: 20171122
  60. PREDNISOLON [Concomitant]
     Active Substance: PREDNISOLONE
     Route: 048
     Dates: start: 20191114
  61. IBUPROFEN. [Concomitant]
     Active Substance: IBUPROFEN
     Indication: HEADACHE
     Dates: start: 20180717
  62. CEFUROXIM [Concomitant]
     Active Substance: CEFUROXIME
     Indication: METASTASES TO BONE
     Dates: start: 20200310, end: 20200320
  63. ZOSTEX [Concomitant]
     Active Substance: BRIVUDINE
     Indication: HERPES ZOSTER
     Dates: start: 20200507, end: 20200514

REACTIONS (1)
  - Serous retinal detachment [Not Recovered/Not Resolved]

NARRATIVE: CASE EVENT DATE: 20171110
